FAERS Safety Report 20202483 (Version 1)
Quarter: 2021Q4

REPORT INFORMATION
  Report Type: Spontaneous
  Country: US (occurrence: US)
  Receive Date: 20211217
  Receipt Date: 20211217
  Transmission Date: 20220303
  Serious: Yes (Hospitalization)
  Sender: FDA-Public Use
  Company Number: US-009507513-2112USA005221

PATIENT
  Sex: Male

DRUGS (1)
  1. PREVYMIS [Suspect]
     Active Substance: LETERMOVIR
     Indication: Acute myeloid leukaemia
     Dosage: 480 MILLIGRAM, DAILY
     Route: 048

REACTIONS (1)
  - Hospitalisation [Unknown]
